FAERS Safety Report 16865811 (Version 2)
Quarter: 2019Q4

REPORT INFORMATION
  Report Type: Spontaneous
  Country: US (occurrence: US)
  Receive Date: 20190930
  Receipt Date: 20191010
  Transmission Date: 20200122
  Serious: Yes (Hospitalization)
  Sender: FDA-Public Use
  Company Number: US-SHIRE-US201931853

PATIENT
  Age: 45 Year
  Sex: Male

DRUGS (1)
  1. NATPARA (PARATHYROID HORMONE) [Suspect]
     Active Substance: PARATHYROID HORMONE
     Indication: PRODUCT USED FOR UNKNOWN INDICATION
     Dosage: 100 MICROGRAM
     Route: 065
     Dates: start: 20171219, end: 20190907

REACTIONS (5)
  - Blood calcium decreased [Recovering/Resolving]
  - Inappropriate schedule of product administration [Unknown]
  - Expired device used [Unknown]
  - Device issue [Unknown]
  - Recalled product [Unknown]

NARRATIVE: CASE EVENT DATE: 20190701
